FAERS Safety Report 14952983 (Version 1)
Quarter: 2018Q2

REPORT INFORMATION
  Report Type: Spontaneous
  Country: US (occurrence: US)
  Receive Date: 20180530
  Receipt Date: 20180530
  Transmission Date: 20180711
  Serious: Yes (Other)
  Sender: FDA-Public Use
  Company Number: US-STI PHARMA LLC-2048677

PATIENT
  Age: 58 Year
  Sex: Female

DRUGS (2)
  1. ETHAMBUTOL HYDROCHLORIDE. [Suspect]
     Active Substance: ETHAMBUTOL HYDROCHLORIDE
  2. RIFAMPIN. [Suspect]
     Active Substance: RIFAMPIN

REACTIONS (2)
  - Mycobacterium avium complex infection [Unknown]
  - Vomiting [Unknown]
